FAERS Safety Report 19345219 (Version 1)
Quarter: 2021Q2

REPORT INFORMATION
  Report Type: Spontaneous
  Country: US (occurrence: US)
  Receive Date: 20210531
  Receipt Date: 20210531
  Transmission Date: 20210717
  Serious: Yes (Other)
  Sender: FDA-Public Use
  Company Number: US-TEVA-2021-US-1914318

PATIENT
  Age: 78 Year
  Sex: Female

DRUGS (13)
  1. VITAMIN D2 [Concomitant]
     Active Substance: ERGOCALCIFEROL
     Dosage: 50,000 UNITS, EVERY OTHER WEEK
  2. AMLODIPINE [Concomitant]
     Active Substance: AMLODIPINE BESYLATE
  3. GLIPIZIDE. [Concomitant]
     Active Substance: GLIPIZIDE
  4. CILOSTAZOL. [Suspect]
     Active Substance: CILOSTAZOL
     Dosage: 100 MILLIGRAM DAILY;
     Route: 048
  5. ACETAMINOPHEN. [Concomitant]
     Active Substance: ACETAMINOPHEN
     Dosage: EVERY 6 HOURS
  6. MELATONIN [Concomitant]
     Active Substance: MELATONIN
     Indication: SLEEP DISORDER
     Dosage: AS NEEDED
  7. CILOSTAZOL. [Suspect]
     Active Substance: CILOSTAZOL
     Dosage: 200 MILLIGRAM DAILY;
     Route: 048
  8. VITAMIN B12 [Concomitant]
     Active Substance: CYANOCOBALAMIN
     Dosage: EVERY 2 WEEKS
  9. LOSARTAN. [Concomitant]
     Active Substance: LOSARTAN
  10. OMEPRAZOLE. [Concomitant]
     Active Substance: OMEPRAZOLE
  11. PLAVIX [Concomitant]
     Active Substance: CLOPIDOGREL BISULFATE
  12. PRAVASTATIN. [Concomitant]
     Active Substance: PRAVASTATIN
  13. CARVEDILOL/COREG [Concomitant]

REACTIONS (8)
  - Anxiety [Unknown]
  - Contusion [Unknown]
  - Incorrect dose administered [Unknown]
  - Product dispensing error [Unknown]
  - Diarrhoea [Unknown]
  - Surgery [Unknown]
  - Urinary tract infection [Unknown]
  - Epistaxis [Unknown]

NARRATIVE: CASE EVENT DATE: 20210419
